FAERS Safety Report 10396275 (Version 1)
Quarter: 2014Q1

REPORT INFORMATION
  Report Type: Spontaneous
  Country: US (occurrence: None)
  Receive Date: 20130815
  Receipt Date: 20130815
  Transmission Date: 20141002
  Serious: Yes (Life-Threatening, Hospitalization, Other)
  Sender: FDA-Public Use
  Company Number: ADR-2012-01198

PATIENT
  Sex: Male

DRUGS (4)
  1. BACLOFEN INTRATHECAL (BALOFEN INJECTION) 500 MCG/ML [Suspect]
     Indication: MUSCLE SPASTICITY
  2. BACLOFEN INTRATHECAL (BALOFEN INJECTION) 500 MCG/ML [Suspect]
     Indication: CRANIOCEREBRAL INJURY
  3. MORPHINE [Concomitant]
  4. DILAUDID [Concomitant]

REACTIONS (7)
  - Pyrexia [None]
  - Muscle spasticity [None]
  - Drug withdrawal syndrome [None]
  - Urinary tract infection [None]
  - Therapeutic response decreased [None]
  - Pain [None]
  - Aspiration [None]
